FAERS Safety Report 15157540 (Version 2)
Quarter: 2018Q3

REPORT INFORMATION
  Report Type: Report from Study
  Country: GB (occurrence: GB)
  Receive Date: 20180718
  Receipt Date: 20180914
  Transmission Date: 20181010
  Serious: Yes (Other)
  Sender: FDA-Public Use
  Company Number: GB-TEVA-2018-GB-928295

PATIENT
  Age: 39 Year
  Sex: Male

DRUGS (1)
  1. COPAXONE [Suspect]
     Active Substance: GLATIRAMER ACETATE
     Indication: MULTIPLE SCLEROSIS
     Route: 058
     Dates: start: 20180716

REACTIONS (12)
  - Back pain [Recovered/Resolved]
  - Diarrhoea [Unknown]
  - Immediate post-injection reaction [Unknown]
  - Flushing [Unknown]
  - Heart rate increased [Recovered/Resolved]
  - Mobility decreased [Unknown]
  - Limb discomfort [Unknown]
  - Asthenia [Unknown]
  - Feeling abnormal [Unknown]
  - Fall [Unknown]
  - Device issue [Unknown]
  - Speech disorder [Unknown]

NARRATIVE: CASE EVENT DATE: 20180910
